FAERS Safety Report 8269813-2 (Version None)
Quarter: 2012Q2

REPORT INFORMATION
  Report Type: 
  Country: None (occurrence: None)
  Receive Date: 20120406
  Receipt Date: 20120319
  Transmission Date: 20120825
  Serious: Yes (Other)
  Sender: FDA-Public Use
  Company Number: 1725006-2012-00001

PATIENT

DRUGS (2)
  1. BEEGENTLE TOPICAL ANESTHETIC GEL, 20% BENZOCAINE [Suspect]
     Indication: LOCAL ANAESTHESIA
     Dosage: ~0.2CC, 1 USE, 004
     Dates: start: 20120301
  2. LOCAL SITE INJECTION OF LIDOCAINE FOR ONE PATIENT, SEPTOCAINE FOR THE [Concomitant]

REACTIONS (2)
  - APPLICATION SITE PAIN [None]
  - APPLICATION SITE VESICLES [None]
